FAERS Safety Report 5012120-1 (Version None)
Quarter: 2006Q2

REPORT INFORMATION
  Report Type: 
  Country: None (occurrence: None)
  Receive Date: 20060525
  Receipt Date: 20060525
  Transmission Date: 20061013
  Serious: No
  Sender: FDA-Public Use
  Company Number: None

PATIENT
  Sex: Female

DRUGS (1)
  1. MORPHINE [Suspect]
     Dosage: IV
     Route: 042
     Dates: start: 20060516

REACTIONS (1)
  - URTICARIA [None]
